FAERS Safety Report 9374034 (Version 1)
Quarter: 2013Q2

REPORT INFORMATION
  Report Type: Spontaneous
  Country: FR (occurrence: FR)
  Receive Date: 20130628
  Receipt Date: 20130628
  Transmission Date: 20140414
  Serious: Yes (Other)
  Sender: FDA-Public Use
  Company Number: FR-ROCHE-1241163

PATIENT
  Age: 52 Year
  Sex: Male

DRUGS (3)
  1. RITUXIMAB [Suspect]
     Indication: MYASTHENIA GRAVIS
     Route: 042
  2. PREDNISOLONE [Suspect]
     Indication: MYASTHENIA GRAVIS
     Dosage: FLUCTUATING BETWEEN 20 AND 40 MG
     Route: 048
  3. MYCOPHENOLATE MOFETIL [Suspect]
     Indication: MYASTHENIA GRAVIS
     Route: 065

REACTIONS (2)
  - Myocardial infarction [Unknown]
  - Treatment failure [Unknown]
